APPROVED DRUG PRODUCT: NASONEX
Active Ingredient: MOMETASONE FUROATE
Strength: 0.05MG/SPRAY **Federal Register determination that product was not discontinued or withdrawn for safety or effectiveness reasons**
Dosage Form/Route: SPRAY, METERED;NASAL
Application: N020762 | Product #001
Applicant: ORGANON LLC
Approved: Oct 1, 1997 | RLD: Yes | RS: No | Type: DISCN